FAERS Safety Report 4542287-0 (Version None)
Quarter: 2004Q4

REPORT INFORMATION
  Report Type: 
  Country: None (occurrence: None)
  Receive Date: 20041227
  Receipt Date: 20041210
  Transmission Date: 20050328
  Serious: No
  Sender: FDA-Public Use
  Company Number: 2004-BP-10675BP (1)

PATIENT
  Sex: Female

DRUGS (6)
  1. MOBIC [Suspect]
     Indication: ARTHRALGIA
     Dosage: 7.5 MG (7.5 MG), PO
     Route: 048
     Dates: start: 20041002
  2. COUMADIN [Concomitant]
  3. VICODIN [Concomitant]
  4. COLACE (DOCUSATE SODIUM) [Concomitant]
  5. ATIVAN [Concomitant]
  6. MECININE [Concomitant]

REACTIONS (6)
  - ECCHYMOSIS [None]
  - HAEMATOCRIT DECREASED [None]
  - HAEMOGLOBIN DECREASED [None]
  - HAEMORRHAGE [None]
  - MUSCULOSKELETAL STIFFNESS [None]
  - PROTHROMBIN TIME PROLONGED [None]
